FAERS Safety Report 18450278 (Version 4)
Quarter: 2021Q2

REPORT INFORMATION
  Report Type: Spontaneous
  Country: US (occurrence: US)
  Receive Date: 20201102
  Receipt Date: 20210518
  Transmission Date: 20210717
  Serious: Yes (Death, Life-Threatening, Hospitalization, Other)
  Sender: FDA-Public Use
  Company Number: US-DRREDDYS-USA/USA/20/0128456

PATIENT
  Age: 45 Year
  Sex: Female

DRUGS (1)
  1. GEMCITABINE. [Suspect]
     Active Substance: GEMCITABINE
     Indication: CERVIX CARCINOMA RECURRENT
     Route: 065

REACTIONS (5)
  - Proteinuria [Fatal]
  - Thrombotic microangiopathy [Fatal]
  - Renal tubular necrosis [Fatal]
  - Haematuria [Fatal]
  - Acute kidney injury [Fatal]
